FAERS Safety Report 21412044 (Version 5)
Quarter: 2023Q2

REPORT INFORMATION
  Report Type: Report from Study
  Country: FR (occurrence: FR)
  Receive Date: 20221005
  Receipt Date: 20230410
  Transmission Date: 20230722
  Serious: Yes (Other)
  Sender: FDA-Public Use
  Company Number: FR-GILEAD-2022-0599233

PATIENT
  Sex: Female
  Weight: 61 kg

DRUGS (7)
  1. SACITUZUMAB GOVITECAN-HZIY [Suspect]
     Active Substance: SACITUZUMAB GOVITECAN-HZIY
     Indication: Breast cancer metastatic
     Dosage: 8 MG/KG, C1D1  FREQUENCY: 1:8:21
     Route: 042
     Dates: start: 20220907
  2. SACITUZUMAB GOVITECAN-HZIY [Suspect]
     Active Substance: SACITUZUMAB GOVITECAN-HZIY
     Dosage: 7.5 MG/KG ON C2D1 AND C2D8
     Route: 042
     Dates: start: 20220928, end: 20221005
  3. SACITUZUMAB GOVITECAN-HZIY [Suspect]
     Active Substance: SACITUZUMAB GOVITECAN-HZIY
     Dosage: 300 MG
     Route: 042
  4. SACITUZUMAB GOVITECAN-HZIY [Suspect]
     Active Substance: SACITUZUMAB GOVITECAN-HZIY
     Dosage: 5.0 MG/KG ON C3D1 AND C3D8
     Route: 042
     Dates: start: 20221019, end: 20221026
  5. SACITUZUMAB GOVITECAN-HZIY [Suspect]
     Active Substance: SACITUZUMAB GOVITECAN-HZIY
     Dosage: 5.0 MG/KG ON C4D1 AND C4D8
     Route: 042
     Dates: start: 20221116, end: 20221123
  6. SACITUZUMAB GOVITECAN-HZIY [Suspect]
     Active Substance: SACITUZUMAB GOVITECAN-HZIY
     Dosage: 5 MG/KG ON C5D1 AND C5D8
     Route: 042
     Dates: start: 20221207, end: 20221214
  7. SACITUZUMAB GOVITECAN-HZIY [Suspect]
     Active Substance: SACITUZUMAB GOVITECAN-HZIY
     Dosage: 5 MG/KG
     Route: 042
     Dates: start: 20230104, end: 20230104

REACTIONS (8)
  - Neutropenia [Recovering/Resolving]
  - Leukopenia [Recovered/Resolved]
  - Mucosal inflammation [Not Recovered/Not Resolved]
  - Asthenia [Not Recovered/Not Resolved]
  - Diarrhoea [Recovered/Resolved]
  - Mucosal inflammation [Recovered/Resolved]
  - Infection [Recovered/Resolved]
  - Off label use [Unknown]

NARRATIVE: CASE EVENT DATE: 20220913
